FAERS Safety Report 25716690 (Version 1)
Quarter: 2025Q3

REPORT INFORMATION
  Report Type: Spontaneous
  Country: US (occurrence: US)
  Receive Date: 20250822
  Receipt Date: 20250822
  Transmission Date: 20251021
  Serious: Yes (Hospitalization)
  Sender: CHIESI
  Company Number: US-CHIESI-2025CHF05803

PATIENT
  Age: 42 Year
  Sex: Female

DRUGS (2)
  1. MYCAPSSA [Suspect]
     Active Substance: OCTREOTIDE
     Indication: Acromegaly
     Dosage: 2 DOSAGE FORM, BID
     Route: 048
     Dates: start: 20250806
  2. MYCAPSSA [Suspect]
     Active Substance: OCTREOTIDE
     Indication: Gigantism

REACTIONS (1)
  - Ill-defined disorder [Not Recovered/Not Resolved]

NARRATIVE: CASE EVENT DATE: 20250801
